FAERS Safety Report 24995468 (Version 1)
Quarter: 2025Q1

REPORT INFORMATION
  Report Type: Spontaneous
  Country: CH (occurrence: CH)
  Receive Date: 20250221
  Receipt Date: 20250221
  Transmission Date: 20250408
  Serious: Yes (Hospitalization)
  Sender: UCB
  Company Number: None

PATIENT
  Age: 38 Year
  Sex: Female

DRUGS (14)
  1. CIMZIA [Suspect]
     Active Substance: CERTOLIZUMAB PEGOL
     Indication: Product used for unknown indication
     Dosage: 200 MILLIGRAM, EV 2 WEEKS(QOW)
     Route: 058
     Dates: start: 202104, end: 202301
  2. CIMZIA [Suspect]
     Active Substance: CERTOLIZUMAB PEGOL
     Dosage: 200 MILLIGRAM, EV 4 WEEKS
     Route: 058
     Dates: start: 202302, end: 202310
  3. CIMZIA [Suspect]
     Active Substance: CERTOLIZUMAB PEGOL
     Dosage: 200 MILLIGRAM, EV 2 WEEKS(QOW)
     Route: 058
     Dates: start: 202311, end: 202412
  4. CIMZIA [Suspect]
     Active Substance: CERTOLIZUMAB PEGOL
     Dosage: 200 MILLIGRAM, EV 2 WEEKS(QOW)
     Route: 058
     Dates: start: 202104, end: 202301
  5. MENOPUR [Suspect]
     Active Substance: FOLLITROPIN\LUTEINIZING HORMONE
     Indication: In vitro fertilisation
     Route: 048
     Dates: start: 20241129, end: 20241210
  6. IBUPROFEN [Suspect]
     Active Substance: IBUPROFEN
     Indication: Migraine
     Route: 048
  7. CLOMIPHENE [Suspect]
     Active Substance: CLOMIPHENE
     Indication: In vitro fertilisation
     Route: 048
     Dates: start: 20241129, end: 20241210
  8. UTROGESTAN [Suspect]
     Active Substance: PROGESTERONE
     Indication: In vitro fertilisation
     Route: 067
     Dates: start: 20241210, end: 20241225
  9. DECAPEPTYL (ACETATE) [Suspect]
     Active Substance: TRIPTORELIN ACETATE
     Indication: In vitro fertilisation
     Route: 058
     Dates: start: 20241210, end: 20241210
  10. ORGALUTRAN [Suspect]
     Active Substance: GANIRELIX ACETATE
     Indication: In vitro fertilisation
     Route: 058
     Dates: start: 20241205, end: 20241210
  11. CHORIOGONADOTROPIN ALFA [Suspect]
     Active Substance: CHORIOGONADOTROPIN ALFA
     Indication: In vitro fertilisation
     Dates: start: 20241210, end: 20241216
  12. NORETHINDRONE ACETATE [Suspect]
     Active Substance: NORETHINDRONE ACETATE
     Indication: In vitro fertilisation
     Route: 036
     Dates: start: 20241122, end: 20241126
  13. ANDREAFOL [Concomitant]
     Indication: Product used for unknown indication
     Dosage: 0.4 MILLIGRAM, ONCE DAILY (QD)
  14. VITAMIN D3 [Concomitant]
     Active Substance: CHOLECALCIFEROL
     Indication: Product used for unknown indication
     Dosage: 800 INTERNATIONAL UNIT, ONCE DAILY (QD)
     Route: 048

REACTIONS (1)
  - Pancreatitis acute [Recovering/Resolving]

NARRATIVE: CASE EVENT DATE: 20250106
